FAERS Safety Report 7082185-4 (Version None)
Quarter: 2010Q4

REPORT INFORMATION
  Report Type: 
  Country: None (occurrence: None)
  Receive Date: 20101103
  Receipt Date: 20101020
  Transmission Date: 20110411
  Serious: Yes (Hospitalization)
  Sender: FDA-Public Use
  Company Number: GB-AMGEN-GBRSP2010000687

PATIENT

DRUGS (4)
  1. NEULASTA [Suspect]
  2. RITUXIMAB [Concomitant]
     Indication: CHEMOTHERAPY
  3. CYCLOPHOSPHAMIDE [Concomitant]
     Indication: CHEMOTHERAPY
  4. PREDNISOLONE [Concomitant]
     Indication: CHEMOTHERAPY

REACTIONS (1)
  - NEUTROPENIA [None]
